FAERS Safety Report 18524103 (Version 2)
Quarter: 2020Q4

REPORT INFORMATION
  Report Type: Report from Study
  Country: BR (occurrence: BR)
  Receive Date: 20201119
  Receipt Date: 20201220
  Transmission Date: 20210114
  Serious: Yes (Other)
  Sender: FDA-Public Use
  Company Number: BR-JNJFOC-20201120112

PATIENT
  Sex: Male
  Weight: 50 kg

DRUGS (5)
  1. STELARA [Suspect]
     Active Substance: USTEKINUMAB
  2. DEPAKENE [Concomitant]
     Active Substance: VALPROIC ACID
  3. DEPAKOTE [Concomitant]
     Active Substance: DIVALPROEX SODIUM
  4. STELARA [Suspect]
     Active Substance: USTEKINUMAB
     Indication: PSORIASIS
     Dosage: 45 MG AT WEEKS 0 AND 4 AND THEN EVERY 12 WEEKS
     Route: 058
  5. CLONAZEPAM. [Concomitant]
     Active Substance: CLONAZEPAM

REACTIONS (1)
  - Seizure [Unknown]
